FAERS Safety Report 19165916 (Version 6)
Quarter: 2022Q1

REPORT INFORMATION
  Report Type: Spontaneous
  Country: US (occurrence: US)
  Receive Date: 20210422
  Receipt Date: 20220217
  Transmission Date: 20220423
  Serious: Yes (Other)
  Sender: FDA-Public Use
  Company Number: US-TEVA-2021-US-1903047

PATIENT
  Age: 49 Year
  Sex: Female

DRUGS (23)
  1. VALSARTAN [Suspect]
     Active Substance: VALSARTAN
     Dosage: DOSE: 160 MG
     Route: 065
     Dates: start: 20161223
  2. VALSARTAN [Suspect]
     Active Substance: VALSARTAN
     Dosage: DOSE: 160 MG (ACTAVIS US AP)
     Route: 065
     Dates: start: 20170523
  3. HYDROCHLOROTHIAZIDE\VALSARTAN [Suspect]
     Active Substance: HYDROCHLOROTHIAZIDE\VALSARTAN
     Dosage: DOSE: 80-12.5 MG
     Route: 065
     Dates: start: 2014
  4. HYDROCHLOROTHIAZIDE\VALSARTAN [Suspect]
     Active Substance: HYDROCHLOROTHIAZIDE\VALSARTAN
     Dosage: DOSE: 160-25 MG
     Route: 065
     Dates: start: 2014
  5. HYDROCHLOROTHIAZIDE\VALSARTAN [Suspect]
     Active Substance: HYDROCHLOROTHIAZIDE\VALSARTAN
     Dosage: DOSE: 80-12.5 MG
     Route: 065
     Dates: start: 2015
  6. LOSARTAN [Suspect]
     Active Substance: LOSARTAN
     Route: 065
  7. VALSARTAN [Suspect]
     Active Substance: VALSARTAN
     Dosage: DOSE: 160 MG
     Route: 065
     Dates: start: 2016
  8. VALSARTAN [Suspect]
     Active Substance: VALSARTAN
     Dosage: DOSE: 160 MG
     Route: 065
     Dates: start: 20170711
  9. HYDROCHLOROTHIAZIDE\VALSARTAN [Suspect]
     Active Substance: HYDROCHLOROTHIAZIDE\VALSARTAN
     Route: 065
  10. VALSARTAN [Suspect]
     Active Substance: VALSARTAN
     Dosage: DOSE: 80 MG
     Route: 065
     Dates: start: 20161029
  11. HYDROCHLOROTHIAZIDE\VALSARTAN [Suspect]
     Active Substance: HYDROCHLOROTHIAZIDE\VALSARTAN
     Dosage: DOSE: 12.5 MG (AUROBINDO BZ)
     Route: 065
     Dates: start: 20180925
  12. HYDROCHLOROTHIAZIDE\VALSARTAN [Suspect]
     Active Substance: HYDROCHLOROTHIAZIDE\VALSARTAN
     Dosage: DOSE: 12.5 MG (AUROBINDO AJS)
     Route: 065
     Dates: start: 20190312
  13. HYDROCHLOROTHIAZIDE\VALSARTAN [Suspect]
     Active Substance: HYDROCHLOROTHIAZIDE\VALSARTAN
     Dosage: DOSE: 25 MG
     Route: 065
     Dates: start: 20150328
  14. HYDROCHLOROTHIAZIDE\VALSARTAN [Suspect]
     Active Substance: HYDROCHLOROTHIAZIDE\VALSARTAN
     Dosage: DOSE: 80-12.5 MG TAB
     Route: 065
     Dates: start: 2012
  15. HYDROCHLOROTHIAZIDE\VALSARTAN [Suspect]
     Active Substance: HYDROCHLOROTHIAZIDE\VALSARTAN
     Dosage: DOSE: 80-12.5 MG TAB
     Route: 065
     Dates: start: 2013
  16. HYDROCHLOROTHIAZIDE\VALSARTAN [Suspect]
     Active Substance: HYDROCHLOROTHIAZIDE\VALSARTAN
     Dosage: DOSE: 80-12.5 MG TAB
     Route: 065
     Dates: start: 2014
  17. VALSARTAN [Suspect]
     Active Substance: VALSARTAN
     Dosage: DOSE: 80 MG
     Route: 065
     Dates: start: 2017
  18. VALSARTAN [Suspect]
     Active Substance: VALSARTAN
     Dosage: DOSE: 160 MG
     Route: 065
     Dates: start: 2017
  19. VALSARTAN [Suspect]
     Active Substance: VALSARTAN
     Dosage: DOSE: 160 MG
     Route: 065
     Dates: start: 2017
  20. VALSARTAN [Suspect]
     Active Substance: VALSARTAN
     Dosage: DOSE: 160 MG
     Route: 065
     Dates: start: 2018
  21. HYDROCHLOROTHIAZIDE\LOSARTAN [Suspect]
     Active Substance: HYDROCHLOROTHIAZIDE\LOSARTAN
     Dosage: DOSE: 100-12.5 MG
     Route: 065
     Dates: start: 2018
  22. LOSARTAN POTASSIUM [Suspect]
     Active Substance: LOSARTAN POTASSIUM
     Dosage: 100 MG
     Route: 065
     Dates: start: 2018
  23. VITAMINS [Concomitant]
     Active Substance: VITAMINS
     Dosage: 1-20-1-1.5-50-6
     Route: 065
     Dates: start: 2016

REACTIONS (5)
  - Hepatic cancer stage IV [Not Recovered/Not Resolved]
  - Breast cancer stage IV [Not Recovered/Not Resolved]
  - Bone cancer [Not Recovered/Not Resolved]
  - Malignant joint neoplasm [Unknown]
  - Metastasis [Unknown]
